FAERS Safety Report 24464498 (Version 1)
Quarter: 2024Q4

REPORT INFORMATION
  Report Type: Spontaneous
  Country: PR (occurrence: PR)
  Receive Date: 20241018
  Receipt Date: 20241018
  Transmission Date: 20250115
  Serious: No
  Sender: ROCHE
  Company Number: PR-ROCHE-3489231

PATIENT
  Sex: Male

DRUGS (1)
  1. XOLAIR [Suspect]
     Active Substance: OMALIZUMAB
     Indication: Product used for unknown indication
     Route: 065

REACTIONS (5)
  - Erythema [Unknown]
  - Skin exfoliation [Unknown]
  - Lichenification [Unknown]
  - Skin abrasion [Unknown]
  - Hand dermatitis [Unknown]
